FAERS Safety Report 4266816-X (Version None)
Quarter: 2004Q1

REPORT INFORMATION
  Report Type: 
  Country: None (occurrence: None)
  Receive Date: 20040108
  Receipt Date: 20030604
  Transmission Date: 20041129
  Serious: No
  Sender: FDA-Public Use
  Company Number: US-GLAXOSMITHKLINE-A0411212A

PATIENT
  Age: 27 Year
  Sex: Female

DRUGS (4)
  1. HEPSERA [Suspect]
     Dosage: 10MG PER DAY
     Route: 048
     Dates: start: 20021018, end: 20021112
  2. EPIVIR [Suspect]
     Route: 048
  3. FLAGYL [Concomitant]
  4. TRIMETHOBENZAMIDE HCL [Concomitant]
     Indication: ABDOMINAL DISCOMFORT

REACTIONS (5)
  - CHEST DISCOMFORT [None]
  - DIZZINESS [None]
  - DYSPNOEA [None]
  - HYPOKALAEMIA [None]
  - PHLEBITIS SUPERFICIAL [None]
